FAERS Safety Report 13535337 (Version 2)
Quarter: 2017Q3

REPORT INFORMATION
  Report Type: Spontaneous
  Country: US (occurrence: US)
  Receive Date: 20170511
  Receipt Date: 20170727
  Transmission Date: 20171127
  Serious: Yes (Hospitalization, Other)
  Sender: FDA-Public Use
  Company Number: US-PFIZER INC-2017196954

PATIENT
  Age: 91 Year
  Sex: Female
  Weight: 84.81 kg

DRUGS (8)
  1. GLIPERIDE [Concomitant]
     Active Substance: GLIMEPIRIDE
     Indication: DIABETES MELLITUS
     Dosage: 2 MG, 1X/DAY, (ONCE PER DAY)
     Route: 048
  2. REVATIO [Suspect]
     Active Substance: SILDENAFIL CITRATE
     Indication: PULMONARY HYPERTENSION
     Dosage: 20 MG, 3X/DAY, (THREE TIMES PER DAY)
     Route: 048
     Dates: start: 201106
  3. LEVOTHYROXINE. [Concomitant]
     Active Substance: LEVOTHYROXINE
     Indication: HYPOTHYROIDISM
     Dosage: 100 UG, 1X/DAY, (ONCE PER DAY)
     Route: 048
  4. OXYBUTYNIN [Concomitant]
     Active Substance: OXYBUTYNIN
     Indication: BLOOD PRESSURE ABNORMAL
     Dosage: 5 MG, 2X/DAY, (TWICE PER DAY)
     Route: 048
  5. CARTIA XT [Concomitant]
     Active Substance: DILTIAZEM HYDROCHLORIDE
     Indication: DIABETES MELLITUS
     Dosage: 120 MG, 1X/DAY, (ONCE PER DAY)
     Route: 048
  6. PANTOPRAZOLE [Concomitant]
     Active Substance: PANTOPRAZOLE
     Indication: GASTROOESOPHAGEAL REFLUX DISEASE
     Dosage: 40 MG, 1X/DAY, (ONCE PER DAY)
     Route: 048
  7. WARFARIN [Concomitant]
     Active Substance: WARFARIN
     Indication: ANTICOAGULANT THERAPY
     Dosage: 500 MG, 1X/DAY
     Route: 048
     Dates: end: 2011
  8. WARFARIN [Concomitant]
     Active Substance: WARFARIN
     Dosage: 500 MG, 1X/DAY, (ONCE PER DAY AT NIGHT)
     Route: 048

REACTIONS (7)
  - Laceration [Recovering/Resolving]
  - Loss of consciousness [Unknown]
  - Musculoskeletal disorder [Unknown]
  - Localised infection [Recovering/Resolving]
  - Body height decreased [Unknown]
  - Herpes zoster [Not Recovered/Not Resolved]
  - Weight decreased [Unknown]

NARRATIVE: CASE EVENT DATE: 201703
